FAERS Safety Report 14003497 (Version 1)
Quarter: 2017Q3

REPORT INFORMATION
  Report Type: Report from Study
  Country: None (occurrence: CO)
  Receive Date: 20170922
  Receipt Date: 20170922
  Transmission Date: 20171128
  Serious: Yes (Other)
  Sender: FDA-Public Use
  Company Number: CO-ABBVIE-17P-036-2110841-00

PATIENT
  Age: 32 Year
  Sex: Female
  Weight: 41 kg

DRUGS (1)
  1. ZEMPLAR [Suspect]
     Active Substance: PARICALCITOL
     Indication: HYPERPARATHYROIDISM SECONDARY
     Dosage: POST DIALYSIS
     Route: 042
     Dates: start: 20170331, end: 20170710

REACTIONS (1)
  - Renal transplant [Not Recovered/Not Resolved]

NARRATIVE: CASE EVENT DATE: 20170920
